FAERS Safety Report 5342032-5 (Version None)
Quarter: 2007Q2

REPORT INFORMATION
  Report Type: 
  Country: None (occurrence: None)
  Receive Date: 20070530
  Receipt Date: 20070530
  Transmission Date: 20071010
  Serious: Yes (Other)
  Sender: FDA-Public Use
  Company Number: None

PATIENT
  Age: 17 Year
  Sex: Male
  Weight: 61.6892 kg

DRUGS (2)
  1. HYOSCYAMINE [Suspect]
     Indication: ABDOMINAL PAIN
     Dosage: 1 TABLET 3 TIMES A DAY PO
     Route: 048
     Dates: start: 20070522, end: 20070526
  2. HYOSCYAMINE [Suspect]
     Indication: MUSCLE SPASMS
     Dosage: 1 TABLET 3 TIMES A DAY PO
     Route: 048
     Dates: start: 20070522, end: 20070526

REACTIONS (6)
  - AGGRESSION [None]
  - AGITATION [None]
  - ANGER [None]
  - HAND FRACTURE [None]
  - MENTAL STATUS CHANGES [None]
  - STRESS [None]
